FAERS Safety Report 8041635-7 (Version None)
Quarter: 2012Q1

REPORT INFORMATION
  Report Type: 
  Country: None (occurrence: None)
  Receive Date: 20120112
  Receipt Date: 20120110
  Transmission Date: 20120608
  Serious: Yes (Other)
  Sender: FDA-Public Use
  Company Number: US-AMGEN-USASP2012001667

PATIENT
  Age: 78 Year
  Sex: Male
  Weight: 99.8 kg

DRUGS (13)
  1. GLUCOPHAGE [Concomitant]
  2. NPLATE [Suspect]
     Indication: SURGERY
  3. ALPHA LIPOIC ACID [Concomitant]
  4. NPLATE [Suspect]
     Indication: IDIOPATHIC THROMBOCYTOPENIC PURPURA
     Dosage: 3 MUG/KG, QWK
     Dates: start: 20110307
  5. PROSCAR [Concomitant]
  6. CITRACAL-D [Concomitant]
  7. OXYCODONE HCL [Concomitant]
  8. TOPROL-XL [Concomitant]
  9. HYDROCHLOROTHIAZIDE [Concomitant]
  10. LOVAZA [Concomitant]
  11. COQ10                              /00517201/ [Concomitant]
  12. GLUCOSAMINE CHONDROITIN            /01430901/ [Concomitant]
  13. SENOKOT [Concomitant]

REACTIONS (1)
  - PLATELET COUNT DECREASED [None]
